FAERS Safety Report 6539456-7 (Version None)
Quarter: 2010Q1

REPORT INFORMATION
  Report Type: 
  Country: None (occurrence: None)
  Receive Date: 20100115
  Receipt Date: 20100108
  Transmission Date: 20100710
  Serious: Yes (Death)
  Sender: FDA-Public Use
  Company Number: FR-ROCHE-678864

PATIENT
  Sex: Female
  Weight: 62 kg

DRUGS (2)
  1. BEVACIZUMAB [Suspect]
     Indication: GLIOBLASTOMA
     Dosage: CUMULATIVE DOSE SINCE FIRST DOSE: 2480 MG. LAST DOSE PRIOR TO SAE: 02 DECEMBER 2009.
     Route: 042
     Dates: start: 20091019
  2. CAMPTOSAR [Suspect]
     Indication: GLIOBLASTOMA
     Dosage: CUMULATIVE DOSE SINCE FIRST DOSE: 840 MG. LAST DOSE PRIOR TO SAE: 2 DECEMBER 2009.
     Route: 042
     Dates: start: 20091019

REACTIONS (1)
  - INTRACRANIAL PRESSURE INCREASED [None]
